FAERS Safety Report 5895401-9 (Version None)
Quarter: 2008Q3

REPORT INFORMATION
  Report Type: 
  Country: None (occurrence: None)
  Receive Date: 20080818
  Receipt Date: 20080307
  Transmission Date: 20090109
  Serious: Yes (Hospitalization)
  Sender: FDA-Public Use
  Company Number: 20084835

PATIENT
  Sex: Female

DRUGS (3)
  1. LIORESAL [Suspect]
     Indication: MUSCLE SPASTICITY
     Dosage: 100 MCG, DAILY, INTRATHECAL
     Route: 037
  2. IMPLANTABLE INFUSION PUMP [Concomitant]
  3. INTRATHECAL CATHETER [Concomitant]

REACTIONS (6)
  - HEADACHE [None]
  - HYPOTENSION [None]
  - NAUSEA [None]
  - OVERDOSE [None]
  - SYNCOPE [None]
  - VOMITING [None]
